FAERS Safety Report 5415173-1 (Version None)
Quarter: 2007Q3

REPORT INFORMATION
  Report Type: 
  Country: None (occurrence: None)
  Receive Date: 20070815
  Receipt Date: 20070712
  Transmission Date: 20080115
  Serious: No
  Sender: FDA-Public Use
  Company Number: A0663684A

PATIENT
  Age: 60 Year
  Sex: Male

DRUGS (3)
  1. COREG CR [Suspect]
     Dosage: 20MG PER DAY
     Route: 048
     Dates: start: 20070501
  2. ASPIRIN [Concomitant]
  3. ALTACE [Concomitant]

REACTIONS (3)
  - ASTHENIA [None]
  - DISABILITY [None]
  - FEELING ABNORMAL [None]
